FAERS Safety Report 4751724-8 (Version None)
Quarter: 2005Q3

REPORT INFORMATION
  Report Type: 
  Country: None (occurrence: None)
  Receive Date: 20050822
  Receipt Date: 20050822
  Transmission Date: 20060218
  Serious: Yes (Disabling)
  Sender: FDA-Public Use
  Company Number: None

PATIENT
  Age: 69 Year
  Sex: Female
  Weight: 77.1115 kg

DRUGS (8)
  1. ACTOS [Suspect]
     Indication: DIABETES MELLITUS NON-INSULIN-DEPENDENT
     Dosage: 15MG   QD   PO
     Route: 048
     Dates: start: 20050621, end: 20050715
  2. ACTOS [Suspect]
     Indication: GLUCOSE TOLERANCE IMPAIRED
     Dosage: 15MG   QD   PO
     Route: 048
     Dates: start: 20050621, end: 20050715
  3. ATARAX [Concomitant]
  4. SYNTHROID [Concomitant]
  5. SINGULAIR [Concomitant]
  6. PRAVACHOL [Concomitant]
  7. ASPIRIN [Concomitant]
  8. RISPERDAL [Concomitant]

REACTIONS (2)
  - ABNORMAL BEHAVIOUR [None]
  - AGGRESSION [None]
